FAERS Safety Report 10513962 (Version 6)
Quarter: 2020Q4

REPORT INFORMATION
  Report Type: Report from Study
  Country: US (occurrence: US)
  Receive Date: 20141013
  Receipt Date: 20201106
  Transmission Date: 20210113
  Serious: Yes (Disabling, Other)
  Sender: FDA-Public Use
  Company Number: US-SA-2014SA138403

PATIENT
  Age: 61 Year
  Sex: Female

DRUGS (8)
  1. TERIFLUNOMIDE. [Suspect]
     Active Substance: TERIFLUNOMIDE
     Dosage: 14 MG, QD
     Route: 048
     Dates: start: 201603
  2. ECHINACEA SPP. [Concomitant]
     Dosage: UNK
  3. TERIFLUNOMIDE. [Suspect]
     Active Substance: TERIFLUNOMIDE
     Indication: MULTIPLE SCLEROSIS
     Dosage: 14 MG, QD
     Route: 048
     Dates: start: 20130627
  4. DOCUSATE SODIUM. [Concomitant]
     Active Substance: DOCUSATE SODIUM
     Indication: ABNORMAL FAECES
     Dosage: UNK UNK,PRN
     Route: 065
     Dates: start: 2012
  5. CYANOCOBALAMIN. [Concomitant]
     Active Substance: CYANOCOBALAMIN
     Indication: BLOOD IRON
     Dosage: 1 DF,QD
     Route: 065
  6. LINUM USITATISSIMUM SEED OIL [Concomitant]
     Indication: ABNORMAL FAECES
     Dosage: 2 DF,QD
     Route: 065
  7. XANTOFYL [Concomitant]
     Indication: EYE DISORDER
     Dosage: 1 DF,QD
     Route: 065
  8. ASCORBIC ACID. [Concomitant]
     Active Substance: ASCORBIC ACID
     Dosage: UNK, QD

REACTIONS (10)
  - Musculoskeletal stiffness [Not Recovered/Not Resolved]
  - Skin warm [Recovered/Resolved]
  - Fall [Recovering/Resolving]
  - Eye contusion [Recovering/Resolving]
  - Gait disturbance [Unknown]
  - Oedema peripheral [Recovered/Resolved]
  - Blood potassium increased [Recovering/Resolving]
  - Disability [Unknown]
  - Fatigue [Not Recovered/Not Resolved]
  - Urinary incontinence [Recovering/Resolving]

NARRATIVE: CASE EVENT DATE: 201409
